FAERS Safety Report 14661990 (Version 1)
Quarter: 2018Q1

REPORT INFORMATION
  Report Type: Report from Study
  Country: US (occurrence: US)
  Receive Date: 20180320
  Receipt Date: 20180320
  Transmission Date: 20180509
  Serious: Yes (Life-Threatening, Hospitalization, Disabling, Other)
  Sender: FDA-Public Use
  Company Number: US-AMGEN-USASL2018036969

PATIENT
  Sex: Male

DRUGS (1)
  1. ENBREL [Suspect]
     Active Substance: ETANERCEPT
     Indication: RHEUMATOID ARTHRITIS
     Dosage: UNK
     Route: 065

REACTIONS (11)
  - Blindness [Unknown]
  - Cervical vertebral fracture [Unknown]
  - Joint swelling [Unknown]
  - Respiratory arrest [Unknown]
  - Corneal graft rejection [Unknown]
  - Keratorhexis [Unknown]
  - Peripheral swelling [Unknown]
  - Haemorrhage [Unknown]
  - Myocardial infarction [Unknown]
  - Corneal transplant [Unknown]
  - Head injury [Unknown]

NARRATIVE: CASE EVENT DATE: 2017
